FAERS Safety Report 5181116-1 (Version None)
Quarter: 2006Q4

REPORT INFORMATION
  Report Type: 
  Country: None (occurrence: None)
  Receive Date: 20061220
  Receipt Date: 20061212
  Transmission Date: 20070319
  Serious: Yes (Hospitalization)
  Sender: FDA-Public Use
  Company Number: ES-ROCHE-474962

PATIENT
  Age: 39 Year
  Sex: Female
  Weight: 56 kg

DRUGS (2)
  1. PEGASYS [Suspect]
     Indication: CHRONIC HEPATITIS
     Dosage: FORM REPORTED AS PREFILLED SYRINGE.
     Route: 058
     Dates: start: 20060126, end: 20061102
  2. RIBAVIRIN [Suspect]
     Indication: CHRONIC HEPATITIS
     Route: 048
     Dates: start: 20060126, end: 20061108

REACTIONS (7)
  - ABDOMINAL PAIN [None]
  - CAECITIS [None]
  - DIARRHOEA [None]
  - GRANULOCYTOPENIA [None]
  - LEUKOPENIA [None]
  - THROMBOCYTOPENIA [None]
  - VOMITING [None]
